FAERS Safety Report 4603689-7 (Version None)
Quarter: 2005Q1

REPORT INFORMATION
  Report Type: 
  Country: None (occurrence: None)
  Receive Date: 20050310
  Receipt Date: 20050303
  Transmission Date: 20050727
  Serious: Yes (Death)
  Sender: FDA-Public Use
  Company Number: CA-JNJFOC-20040500057

PATIENT
  Age: 73 Year
  Sex: Male

DRUGS (10)
  1. DURAGESIC-100 [Suspect]
     Route: 062
     Dates: start: 20040426
  2. DURAGESIC-100 [Suspect]
     Indication: CANCER PAIN
     Route: 062
     Dates: start: 20040426
  3. LUPRON [Concomitant]
  4. GABAPENTIN [Concomitant]
  5. FUROSEMIDE [Concomitant]
  6. HYDROMORPHINE [Concomitant]
     Dosage: 8 MG EVERY 2 HOURS AS NEEDED
  7. ALBUTEROL [Concomitant]
  8. SENOKOT [Concomitant]
  9. ROFECOXIB [Concomitant]
  10. BUDESONIDE [Concomitant]

REACTIONS (2)
  - APPLICATION SITE BRUISING [None]
  - PROSTATE CANCER METASTATIC [None]
